FAERS Safety Report 9365715 (Version 5)
Quarter: 2013Q4

REPORT INFORMATION
  Report Type: Spontaneous
  Country: PL (occurrence: PL)
  Receive Date: 20130625
  Receipt Date: 20131203
  Transmission Date: 20140711
  Serious: Yes (Death, Hospitalization, Other)
  Sender: FDA-Public Use
  Company Number: PL-BAYER-2013-076981

PATIENT
  Age: 74 Year
  Sex: Female
  Weight: 69 kg

DRUGS (11)
  1. ULTRAVIST [Suspect]
     Indication: COMPUTERISED TOMOGRAM THORAX
     Dosage: 90 ML, ONCE
     Route: 042
     Dates: start: 20130614, end: 20130614
  2. PREDUCTAL [Suspect]
  3. FRAXIPARINE [Concomitant]
  4. THEOSPIREX [Concomitant]
  5. FORTUM [Concomitant]
  6. ISOPTIN [Concomitant]
  7. RYTMONORM [Concomitant]
  8. DEXAVEN [Concomitant]
  9. ZANTAC [Concomitant]
  10. FASTUM [Concomitant]
  11. MIANSERIN HYDROCHLORIDE [Concomitant]

REACTIONS (3)
  - Renal failure acute [Fatal]
  - Anuria [Fatal]
  - Pseudomembranous colitis [None]
